FAERS Safety Report 23677259 (Version 1)
Quarter: 2024Q1

REPORT INFORMATION
  Report Type: Spontaneous
  Country: ES (occurrence: ES)
  Receive Date: 20240327
  Receipt Date: 20240327
  Transmission Date: 20240410
  Serious: Yes (Other)
  Sender: FDA-Public Use
  Company Number: None

PATIENT
  Age: 63 Year
  Sex: Female

DRUGS (19)
  1. IFOSFAMIDE [Interacting]
     Active Substance: IFOSFAMIDE
     Indication: Angiocentric lymphoma
     Dosage: 1688 MG, EVERY DAY, DOSAGE FORM: SUSPENSION FOR INJECTION (337A)
     Route: 042
     Dates: start: 20231015, end: 20231017
  2. IFOSFAMIDE [Interacting]
     Active Substance: IFOSFAMIDE
     Indication: Haemophagocytic lymphohistiocytosis
  3. ERTAPENEM [Interacting]
     Active Substance: ERTAPENEM
     Indication: Haemophagocytic lymphohistiocytosis
     Dosage: 1 G, EVERY 24 HOURS, STRENGTH: 1.000 MG, INJECTABLE INFUSION 1 VIAL
     Route: 042
     Dates: start: 20231010, end: 20231013
  4. ERTAPENEM [Interacting]
     Active Substance: ERTAPENEM
     Indication: Angiocentric lymphoma
  5. METHOTREXATE [Interacting]
     Active Substance: METHOTREXATE
     Indication: Haemophagocytic lymphohistiocytosis
     Dosage: 2250 MG, EVERY DAY (418A)
     Route: 042
     Dates: start: 20231014, end: 20231014
  6. METHOTREXATE [Interacting]
     Active Substance: METHOTREXATE
     Indication: Angiocentric lymphoma
  7. FLUCONAZOLE [Interacting]
     Active Substance: FLUCONAZOLE
     Indication: Haemophagocytic lymphohistiocytosis
     Dosage: 100 MG, EVERY DAY, HARD CAPSULES EFG (GENERIC PHARMACEUTICAL EQUIVALENT), 7 CAPSULES
     Route: 048
     Dates: start: 20231101, end: 20231109
  8. FLUCONAZOLE [Interacting]
     Active Substance: FLUCONAZOLE
     Indication: Angiocentric lymphoma
  9. CISPLATIN [Interacting]
     Active Substance: CISPLATIN
     Indication: Haemophagocytic lymphohistiocytosis
     Dosage: 30 MG, EVERY DAY (644A)
     Route: 042
     Dates: start: 20231116, end: 20231122
  10. CISPLATIN [Interacting]
     Active Substance: CISPLATIN
     Indication: Angiocentric lymphoma
  11. AMOXICILLIN\CLAVULANIC ACID [Interacting]
     Active Substance: AMOXICILLIN\CLAVULANIC ACID
     Indication: Haemophagocytic lymphohistiocytosis
     Dosage: 1 G, EVERY 8 HOURS
     Route: 042
     Dates: start: 20230928, end: 20231009
  12. AMOXICILLIN\CLAVULANIC ACID [Interacting]
     Active Substance: AMOXICILLIN\CLAVULANIC ACID
     Indication: Angiocentric lymphoma
  13. FLUCONAZOLE [Interacting]
     Active Substance: FLUCONAZOLE
     Indication: Angiocentric lymphoma
     Dosage: 100 MG, EVERY DAY, INJECTABLE INFUSION 50 ML
     Route: 042
     Dates: start: 20231012, end: 20231014
  14. FLUCONAZOLE [Interacting]
     Active Substance: FLUCONAZOLE
     Indication: Haemophagocytic lymphohistiocytosis
  15. GEMCITABINE [Interacting]
     Active Substance: GEMCITABINE
     Indication: Haemophagocytic lymphohistiocytosis
     Dosage: 1200 MG, EVERY WEEK (7314A)
     Route: 042
     Dates: start: 20231115, end: 20231122
  16. GEMCITABINE [Interacting]
     Active Substance: GEMCITABINE
     Indication: Angiocentric lymphoma
     Dosage: 1200 MG, EVERY DAY (7314A)
     Route: 042
     Dates: start: 20231226, end: 20231226
  17. ETOPOSIDE [Interacting]
     Active Substance: ETOPOSIDE
     Indication: Angiocentric lymphoma
     Dosage: 75 MG, EVERY DAY (518A)
     Route: 042
     Dates: start: 20231015, end: 20231017
  18. ETOPOSIDE [Interacting]
     Active Substance: ETOPOSIDE
     Indication: Haemophagocytic lymphohistiocytosis
  19. ACETAMINOPHEN [Interacting]
     Active Substance: ACETAMINOPHEN
     Dosage: 1 G, EVERY 8 HOUS, STRENGTH: 1.000 MG, DOSAGE FORM: ORAL SOLUTION/SUSPENSION (SACHET)
     Route: 048
     Dates: start: 20230928, end: 20231010

REACTIONS (5)
  - Coagulopathy [Recovered/Resolved]
  - Mixed liver injury [Recovered/Resolved]
  - Mixed liver injury [Recovered/Resolved]
  - Hyperbilirubinaemia [Recovered/Resolved]
  - Hyperbilirubinaemia [Recovered/Resolved]

NARRATIVE: CASE EVENT DATE: 20231013
